FAERS Safety Report 5657964-8 (Version None)
Quarter: 2008Q1

REPORT INFORMATION
  Report Type: 
  Country: None (occurrence: None)
  Receive Date: 20080310
  Receipt Date: 20080229
  Transmission Date: 20080703
  Serious: Yes (Other)
  Sender: FDA-Public Use
  Company Number: PHFR2008GB01003

PATIENT
  Age: 68 Year
  Sex: Female
  Weight: 61 kg

DRUGS (3)
  1. DICLOFENAC SODIUM [Suspect]
     Indication: ARTHRITIS
     Dosage: 50 MG, TID
     Route: 048
     Dates: start: 20070718, end: 20070921
  2. FLUCLOXACILLIN [Concomitant]
     Indication: INFECTION
     Dosage: 250 MG, QID
     Route: 048
     Dates: start: 20070613, end: 20070620
  3. ACETAMINOPHEN [Concomitant]
     Indication: ARTHRITIS
     Dosage: 1 G, QID
     Route: 048
     Dates: start: 20010101

REACTIONS (2)
  - HYPERTENSION [None]
  - NEPHROTIC SYNDROME [None]
